FAERS Safety Report 12358277 (Version 2)
Quarter: 2016Q3

REPORT INFORMATION
  Report Type: Report from Study
  Country: US (occurrence: US)
  Receive Date: 20160512
  Receipt Date: 20160718
  Transmission Date: 20161109
  Serious: Yes (Hospitalization)
  Sender: FDA-Public Use
  Company Number: US-CELGENEUS-USA-2016046247

PATIENT
  Age: 18 Year
  Sex: Female
  Weight: 57.4 kg

DRUGS (170)
  1. LEVOTHYROXINE. [Concomitant]
     Active Substance: LEVOTHYROXINE
     Route: 048
     Dates: start: 20160502, end: 20160506
  2. FENTANYL. [Concomitant]
     Active Substance: FENTANYL
     Dosage: 25 MILLIGRAM
     Route: 041
     Dates: start: 20160411, end: 20160411
  3. ACETAMINOPHEN. [Concomitant]
     Active Substance: ACETAMINOPHEN
     Indication: PAIN
     Route: 041
     Dates: start: 20160420, end: 20160420
  4. PLATELETS [Concomitant]
     Active Substance: HUMAN PLATELET, ALLOGENIC
     Dosage: 3000 MILLIGRAM
     Route: 041
     Dates: start: 20160429, end: 20160429
  5. PLATELETS [Concomitant]
     Active Substance: HUMAN PLATELET, ALLOGENIC
     Route: 041
     Dates: start: 20160507, end: 20160507
  6. HYDROXYUREA. [Concomitant]
     Active Substance: HYDROXYUREA
     Route: 065
     Dates: start: 20150302, end: 20150303
  7. PHYTONADIONE. [Concomitant]
     Active Substance: PHYTONADIONE
     Indication: PROTHROMBIN LEVEL INCREASED
     Route: 065
     Dates: start: 20160421, end: 20160423
  8. PHYTONADIONE. [Concomitant]
     Active Substance: PHYTONADIONE
     Indication: ACTIVATED PARTIAL THROMBOPLASTIN TIME PROLONGED
     Route: 065
     Dates: start: 20160502, end: 20160504
  9. ISRADIPINE. [Concomitant]
     Active Substance: ISRADIPINE
     Indication: HYPERTENSION
     Route: 065
     Dates: start: 20160419, end: 20160501
  10. MAGNESIUM OXIDE. [Concomitant]
     Active Substance: MAGNESIUM OXIDE
     Indication: HYPOMAGNESAEMIA
     Route: 065
     Dates: start: 20160428, end: 20160501
  11. PENTAMIDINE [Concomitant]
     Active Substance: PENTAMIDINE
     Indication: ANTIFUNGAL PROPHYLAXIS
     Route: 065
     Dates: start: 20160421, end: 20160421
  12. PENTAMIDINE [Concomitant]
     Active Substance: PENTAMIDINE
     Route: 065
     Dates: start: 20160510, end: 20160510
  13. LEVOTHYROXINE. [Concomitant]
     Active Substance: LEVOTHYROXINE
     Indication: HYPOTHYROIDISM
     Route: 048
     Dates: start: 20160301, end: 20160419
  14. LEVOTHYROXINE. [Concomitant]
     Active Substance: LEVOTHYROXINE
     Route: 048
     Dates: start: 20160507
  15. OXYCODONE [Concomitant]
     Active Substance: OXYCODONE
     Indication: PAIN
     Route: 048
     Dates: start: 20150828, end: 20160419
  16. FUROSEMIDE. [Concomitant]
     Active Substance: FUROSEMIDE
     Indication: OEDEMA
     Route: 048
     Dates: end: 20160419
  17. FUROSEMIDE. [Concomitant]
     Active Substance: FUROSEMIDE
     Indication: FLUID OVERLOAD
     Route: 048
     Dates: start: 20160421, end: 20160428
  18. FUROSEMIDE. [Concomitant]
     Active Substance: FUROSEMIDE
     Route: 048
     Dates: start: 20160501, end: 20160517
  19. FUROSEMIDE. [Concomitant]
     Active Substance: FUROSEMIDE
     Route: 048
     Dates: start: 20160517, end: 20160518
  20. RANITIDINE. [Concomitant]
     Active Substance: RANITIDINE
     Indication: PROPHYLAXIS
     Route: 048
     Dates: start: 20160108, end: 20160421
  21. LORAZEPAM. [Concomitant]
     Active Substance: LORAZEPAM
     Indication: NAUSEA
     Dosage: 35 MILLIGRAM
     Route: 048
     Dates: start: 20150708
  22. CEFEPIME [Concomitant]
     Active Substance: CEFEPIME HYDROCHLORIDE
     Indication: PYREXIA
     Route: 041
     Dates: start: 20160407, end: 20160411
  23. METOCLOPRAMIDE. [Concomitant]
     Active Substance: METOCLOPRAMIDE
     Route: 048
     Dates: start: 20160419, end: 20160420
  24. METOCLOPRAMIDE. [Concomitant]
     Active Substance: METOCLOPRAMIDE
     Route: 048
     Dates: start: 20160501, end: 20160506
  25. METOCLOPRAMIDE. [Concomitant]
     Active Substance: METOCLOPRAMIDE
     Route: 048
     Dates: start: 20160506
  26. ALBUMIN [Concomitant]
     Active Substance: ALBUMIN HUMAN
     Route: 041
     Dates: start: 20160421, end: 20160421
  27. PACKED RED BLOOD CELLS [Concomitant]
     Active Substance: HUMAN RED BLOOD CELL
     Route: 041
     Dates: start: 20160418, end: 20160418
  28. PLATELETS [Concomitant]
     Active Substance: HUMAN PLATELET, ALLOGENIC
     Indication: THROMBOCYTOPENIA
     Route: 041
     Dates: start: 20160408, end: 20160408
  29. PLATELETS [Concomitant]
     Active Substance: HUMAN PLATELET, ALLOGENIC
     Dosage: .05 MICROGRAM
     Route: 041
     Dates: start: 20160418, end: 20160418
  30. PLATELETS [Concomitant]
     Active Substance: HUMAN PLATELET, ALLOGENIC
     Route: 041
     Dates: start: 20160505, end: 20160505
  31. PLATELETS [Concomitant]
     Active Substance: HUMAN PLATELET, ALLOGENIC
     Dosage: 500 MILLIGRAM
     Route: 041
     Dates: start: 20160513, end: 20160513
  32. PHYTONADIONE. [Concomitant]
     Active Substance: PHYTONADIONE
     Indication: INTERNATIONAL NORMALISED RATIO INCREASED
  33. TPN [Concomitant]
     Active Substance: AMINO ACIDS\DEXTROSE\ELECTROLYTES NOS\SOYBEAN OIL
     Indication: PRODUCT USED FOR UNKNOWN INDICATION
     Dosage: 75CC/HR
     Route: 065
     Dates: start: 20160422, end: 20160425
  34. AMLODIPINE [Concomitant]
     Active Substance: AMLODIPINE BESYLATE
     Indication: HYPERTENSION
     Route: 065
     Dates: start: 20160427, end: 20160501
  35. POTASSIUM CHLORIDE. [Concomitant]
     Active Substance: POTASSIUM CHLORIDE
     Indication: HYPOKALAEMIA
     Route: 065
     Dates: start: 20160424, end: 20160425
  36. METOLAZONE. [Concomitant]
     Active Substance: METOLAZONE
     Indication: OEDEMA
     Route: 065
     Dates: start: 20160502, end: 20160502
  37. PROCHLORPERAZINE. [Concomitant]
     Active Substance: PROCHLORPERAZINE
     Indication: NAUSEA
     Route: 048
     Dates: start: 20160308, end: 20160419
  38. OXYCODONE [Concomitant]
     Active Substance: OXYCODONE
     Route: 048
     Dates: start: 20160429, end: 20160501
  39. OXYCODONE [Concomitant]
     Active Substance: OXYCODONE
     Route: 048
     Dates: start: 20160515
  40. OXYCODONE [Concomitant]
     Active Substance: OXYCODONE
     Route: 048
     Dates: start: 20160516
  41. GRANISETRON [Concomitant]
     Active Substance: GRANISETRON
     Indication: NAUSEA
     Route: 048
     Dates: start: 20160118, end: 20160419
  42. ACYCLOVIR. [Concomitant]
     Active Substance: ACYCLOVIR
     Route: 048
     Dates: start: 20160419, end: 20160426
  43. SENNA [Concomitant]
     Active Substance: SENNA LEAF\SENNOSIDES\SENNOSIDES A AND B
     Indication: CONSTIPATION PROPHYLAXIS
     Route: 048
     Dates: start: 20151113, end: 20160419
  44. CALCIUM-VITAMIN D [Concomitant]
     Indication: SUPPLEMENTATION THERAPY
     Dosage: 250MG/400 IU
     Route: 048
     Dates: start: 20150923, end: 20160419
  45. CALCIUM-VITAMIN D [Concomitant]
     Dosage: 250-400 MG IU
     Route: 048
     Dates: start: 20160519
  46. CEFEPIME [Concomitant]
     Active Substance: CEFEPIME HYDROCHLORIDE
     Route: 041
     Dates: start: 20160501, end: 20160519
  47. ACETAMINOPHEN. [Concomitant]
     Active Substance: ACETAMINOPHEN
     Route: 065
     Dates: start: 20160503, end: 20160504
  48. DIPHENHYDRAMINE. [Concomitant]
     Active Substance: DIPHENHYDRAMINE
     Indication: PREMEDICATION
     Dosage: 1000 MILLIGRAM
     Route: 048
     Dates: start: 20160317
  49. DEXTROSE 5% IN 0.9% NORMAL SALINE [Concomitant]
     Dosage: 50ML/HR
     Route: 041
     Dates: start: 20160419, end: 20160422
  50. DEXTROSE 5% IN 0.9% NORMAL SALINE [Concomitant]
     Route: 041
     Dates: start: 20160507, end: 20160510
  51. SCOPALAMINE [Concomitant]
     Active Substance: SCOPOLAMINE
     Indication: NAUSEA
     Route: 062
     Dates: start: 20160407
  52. PACKED RED BLOOD CELLS [Concomitant]
     Active Substance: HUMAN RED BLOOD CELL
     Route: 041
     Dates: start: 20160426, end: 20160426
  53. PLATELETS [Concomitant]
     Active Substance: HUMAN PLATELET, ALLOGENIC
     Route: 041
     Dates: start: 20160411, end: 20160411
  54. PLATELETS [Concomitant]
     Active Substance: HUMAN PLATELET, ALLOGENIC
     Dosage: 600 MILLIGRAM
     Route: 041
     Dates: start: 20160424, end: 20160424
  55. HYDROXYUREA. [Concomitant]
     Active Substance: HYDROXYUREA
     Route: 065
     Dates: start: 20150222, end: 20150222
  56. HYDROXYUREA. [Concomitant]
     Active Substance: HYDROXYUREA
     Route: 065
     Dates: start: 20150702, end: 20150705
  57. DECITABINE. [Concomitant]
     Active Substance: DECITABINE
     Route: 065
     Dates: start: 20160510, end: 20160519
  58. DECITABINE. [Concomitant]
     Active Substance: DECITABINE
     Route: 065
     Dates: start: 20150724, end: 20150802
  59. DOBUTAMINE [Concomitant]
     Active Substance: DOBUTAMINE\DOBUTAMINE HYDROCHLORIDE
     Indication: HYPOTENSION
     Route: 065
     Dates: start: 20160421, end: 20160421
  60. CALCIUM CARBONATE. [Concomitant]
     Active Substance: CALCIUM CARBONATE
     Indication: HYPOCALCAEMIA
     Route: 065
     Dates: start: 20160427, end: 20160501
  61. LANSOPRAZOLE. [Concomitant]
     Active Substance: LANSOPRAZOLE
     Indication: PROPHYLAXIS
     Route: 065
     Dates: start: 20160428, end: 20160501
  62. ISRADIPINE. [Concomitant]
     Active Substance: ISRADIPINE
     Route: 065
     Dates: start: 20160514, end: 20160519
  63. CC-5013 [Suspect]
     Active Substance: LENALIDOMIDE
     Indication: ACUTE MYELOID LEUKAEMIA
     Route: 048
     Dates: start: 20160321, end: 20160410
  64. CC-5013 [Suspect]
     Active Substance: LENALIDOMIDE
     Route: 048
     Dates: start: 20160420, end: 20160425
  65. LEVOTHYROXINE. [Concomitant]
     Active Substance: LEVOTHYROXINE
     Indication: HYPOTHYROIDISM
     Route: 048
     Dates: start: 20160419, end: 20160427
  66. OXYCODONE [Concomitant]
     Active Substance: OXYCODONE
     Route: 048
     Dates: start: 20160429, end: 20160501
  67. CASPOFUNGIN [Concomitant]
     Active Substance: CASPOFUNGIN
     Indication: ANTIFUNGAL PROPHYLAXIS
     Route: 041
     Dates: start: 20160112
  68. RANITIDINE. [Concomitant]
     Active Substance: RANITIDINE
     Route: 048
     Dates: start: 20160429, end: 20160501
  69. LORAZEPAM. [Concomitant]
     Active Substance: LORAZEPAM
     Route: 048
     Dates: start: 20160419, end: 20160519
  70. CEFEPIME [Concomitant]
     Active Substance: CEFEPIME HYDROCHLORIDE
     Indication: SINUSITIS
     Dosage: 1.5 MILLIGRAM
     Route: 041
     Dates: start: 20160419, end: 20160428
  71. ACETAMINOPHEN. [Concomitant]
     Active Substance: ACETAMINOPHEN
     Indication: PREMEDICATION
     Dosage: 15 MILLILITER
     Route: 048
     Dates: start: 20160317
  72. METOCLOPRAMIDE. [Concomitant]
     Active Substance: METOCLOPRAMIDE
     Indication: NAUSEA
     Route: 048
     Dates: start: 20160418, end: 20160419
  73. METOCLOPRAMIDE. [Concomitant]
     Active Substance: METOCLOPRAMIDE
     Route: 048
     Dates: start: 20160420, end: 20160501
  74. NORMAL SALINE [Concomitant]
     Active Substance: SODIUM CHLORIDE
     Indication: FLUID REPLACEMENT
     Route: 040
     Dates: start: 20160419, end: 20160419
  75. PACKED RED BLOOD CELLS [Concomitant]
     Active Substance: HUMAN RED BLOOD CELL
     Route: 041
     Dates: start: 20160502, end: 20160502
  76. PLATELETS [Concomitant]
     Active Substance: HUMAN PLATELET, ALLOGENIC
     Dosage: 10 MILLIGRAM
     Route: 041
     Dates: start: 20160427, end: 20160427
  77. PLATELETS [Concomitant]
     Active Substance: HUMAN PLATELET, ALLOGENIC
     Route: 041
     Dates: start: 20160511, end: 20160511
  78. PLATELETS [Concomitant]
     Active Substance: HUMAN PLATELET, ALLOGENIC
     Route: 041
     Dates: start: 20160517, end: 20160517
  79. DECITABINE. [Concomitant]
     Active Substance: DECITABINE
     Route: 065
     Dates: start: 20150302, end: 20150311
  80. DECITABINE. [Concomitant]
     Active Substance: DECITABINE
     Route: 065
     Dates: start: 20160518, end: 20160529
  81. DECITABINE. [Concomitant]
     Active Substance: DECITABINE
     Route: 065
     Dates: start: 20151212, end: 20151221
  82. PANTOPRAZOLE [Concomitant]
     Active Substance: PANTOPRAZOLE SODIUM
     Indication: PROPHYLAXIS
     Route: 065
     Dates: start: 20160421, end: 20160424
  83. LANSOPRAZOLE. [Concomitant]
     Active Substance: LANSOPRAZOLE
     Route: 065
     Dates: start: 20160506, end: 20160519
  84. POTASSIUM PHOSPHATE [Concomitant]
     Active Substance: POTASSIUM PHOSPHATE
     Indication: HYPOKALAEMIA
     Dosage: 4.5 MMOL
     Route: 065
     Dates: start: 20160425, end: 20160425
  85. POTASSIUM PHOSPHATE [Concomitant]
     Active Substance: POTASSIUM PHOSPHATE
     Route: 065
     Dates: start: 20160425, end: 20160501
  86. ISRADIPINE. [Concomitant]
     Active Substance: ISRADIPINE
     Route: 065
     Dates: start: 20160505, end: 20160505
  87. EMLA [Concomitant]
     Active Substance: LIDOCAINE\PRILOCAINE
     Indication: PROPHYLAXIS
     Route: 065
     Dates: start: 20160505, end: 20160505
  88. CALCIUM CHLORIDE. [Concomitant]
     Active Substance: CALCIUM CHLORIDE
     Route: 065
     Dates: start: 20160511, end: 20160511
  89. CALCIUM GLUCONATE. [Concomitant]
     Active Substance: CALCIUM GLUCONATE
     Indication: HYPOCALCAEMIA
     Route: 065
     Dates: start: 20160427, end: 20160501
  90. ALTEPLASE [Concomitant]
     Active Substance: ALTEPLASE
     Route: 065
     Dates: start: 20160502, end: 20160504
  91. ALTEPLASE [Concomitant]
     Active Substance: ALTEPLASE
     Route: 065
     Dates: start: 20160502, end: 20160502
  92. LEVOTHYROXINE. [Concomitant]
     Active Substance: LEVOTHYROXINE
     Route: 048
     Dates: start: 20160428, end: 20160501
  93. GRANISETRON [Concomitant]
     Active Substance: GRANISETRON
     Route: 048
     Dates: start: 20160426, end: 20160501
  94. RANITIDINE. [Concomitant]
     Active Substance: RANITIDINE
     Route: 048
     Dates: start: 20160519
  95. ACYCLOVIR. [Concomitant]
     Active Substance: ACYCLOVIR
     Route: 048
     Dates: start: 20160507
  96. FENTANYL. [Concomitant]
     Active Substance: FENTANYL
     Indication: ANAESTHESIA
     Dosage: 30 MILLIGRAM
     Route: 041
     Dates: start: 20160316, end: 20160316
  97. LACTATED RINGS [Concomitant]
     Indication: FLUID REPLACEMENT
     Route: 041
     Dates: start: 20160316, end: 20160316
  98. CETIRIZINE [Concomitant]
     Active Substance: CETIRIZINE HYDROCHLORIDE
     Indication: NASAL CONGESTION
     Route: 048
     Dates: start: 20160331, end: 20160406
  99. OXYMETAZOLINE [Concomitant]
     Active Substance: OXYMETAZOLINE
     Indication: SINUSITIS
     Dosage: 2 SPRAYS
     Route: 045
     Dates: start: 20160407, end: 20160419
  100. ACETAMINOPHEN. [Concomitant]
     Active Substance: ACETAMINOPHEN
     Indication: PYREXIA
     Route: 041
     Dates: start: 20160419, end: 20160428
  101. DEXTROSE 5% IN 0.9% NORMAL SALINE [Concomitant]
     Dosage: 50ML/HR
     Route: 041
     Dates: start: 20160501, end: 20160504
  102. OXYGEN. [Concomitant]
     Active Substance: OXYGEN
     Indication: PRODUCT USED FOR UNKNOWN INDICATION
     Route: 055
  103. PACKED RED BLOOD CELLS [Concomitant]
     Active Substance: HUMAN RED BLOOD CELL
     Route: 041
     Dates: start: 20160513, end: 20160513
  104. PLATELETS [Concomitant]
     Active Substance: HUMAN PLATELET, ALLOGENIC
     Route: 041
     Dates: start: 20160409, end: 20160409
  105. PLATELETS [Concomitant]
     Active Substance: HUMAN PLATELET, ALLOGENIC
     Route: 041
     Dates: start: 20160415, end: 20160415
  106. HYDROXYUREA. [Concomitant]
     Active Substance: HYDROXYUREA
     Indication: PRODUCT USED FOR UNKNOWN INDICATION
     Route: 065
     Dates: start: 20150107, end: 20150107
  107. HYDROXYUREA. [Concomitant]
     Active Substance: HYDROXYUREA
     Route: 065
     Dates: start: 20160506, end: 20160508
  108. DECITABINE. [Concomitant]
     Active Substance: DECITABINE
     Indication: PRODUCT USED FOR UNKNOWN INDICATION
     Route: 065
     Dates: start: 20150107, end: 20150117
  109. NOREPINEPHRINE [Concomitant]
     Active Substance: NOREPINEPHRINE\NOREPINEPHRINE BITARTRATE
     Indication: HYPOTENSION
     Route: 065
     Dates: start: 20160421, end: 20160421
  110. MAGNESIUM SULFATE. [Concomitant]
     Active Substance: MAGNESIUM SULFATE
     Indication: HYPOMAGNESAEMIA
     Route: 065
     Dates: start: 20160421, end: 20160421
  111. MAGNESIUM SULFATE. [Concomitant]
     Active Substance: MAGNESIUM SULFATE
     Route: 065
     Dates: start: 20160501, end: 20160501
  112. MAGNESIUM SULFATE. [Concomitant]
     Active Substance: MAGNESIUM SULFATE
     Route: 065
     Dates: start: 20160510, end: 20160510
  113. POTASSIUM CHLORIDE. [Concomitant]
     Active Substance: POTASSIUM CHLORIDE
     Route: 065
     Dates: start: 20160503, end: 20160519
  114. AZITHROMYCIN ANHYDROUS. [Concomitant]
     Active Substance: AZITHROMYCIN ANHYDROUS
     Indication: PYREXIA
     Route: 065
     Dates: start: 20160501, end: 20160501
  115. METOLAZONE. [Concomitant]
     Active Substance: METOLAZONE
     Route: 065
     Dates: start: 20160501, end: 20160512
  116. PROCHLORPERAZINE. [Concomitant]
     Active Substance: PROCHLORPERAZINE
     Route: 048
     Dates: start: 20160419, end: 20160519
  117. FUROSEMIDE. [Concomitant]
     Active Substance: FUROSEMIDE
     Route: 048
     Dates: start: 20160518
  118. ACYCLOVIR. [Concomitant]
     Active Substance: ACYCLOVIR
     Route: 048
     Dates: start: 20160427, end: 20160501
  119. PROPOFOL. [Concomitant]
     Active Substance: PROPOFOL
     Route: 041
     Dates: start: 20160411, end: 20160411
  120. ACETAMINOPHEN. [Concomitant]
     Active Substance: ACETAMINOPHEN
     Route: 065
     Dates: start: 20160508, end: 20160514
  121. HYDROMORPHONE [Concomitant]
     Active Substance: HYDROMORPHONE
     Indication: PAIN
     Route: 041
     Dates: start: 20160419, end: 20160428
  122. VANCOMYCIN [Concomitant]
     Active Substance: VANCOMYCIN
     Indication: PYREXIA
     Route: 041
     Dates: start: 20160419, end: 20160422
  123. PACKED RED BLOOD CELLS [Concomitant]
     Active Substance: HUMAN RED BLOOD CELL
     Indication: ANAEMIA
     Route: 041
     Dates: start: 20160422, end: 20160422
  124. PACKED RED BLOOD CELLS [Concomitant]
     Active Substance: HUMAN RED BLOOD CELL
     Route: 041
     Dates: start: 20160328, end: 20160328
  125. PACKED RED BLOOD CELLS [Concomitant]
     Active Substance: HUMAN RED BLOOD CELL
     Route: 041
     Dates: start: 20160415, end: 20160415
  126. PACKED RED BLOOD CELLS [Concomitant]
     Active Substance: HUMAN RED BLOOD CELL
     Route: 041
     Dates: start: 20160421, end: 20160421
  127. PLATELETS [Concomitant]
     Active Substance: HUMAN PLATELET, ALLOGENIC
     Route: 041
     Dates: start: 20160425, end: 20160425
  128. PLATELETS [Concomitant]
     Active Substance: HUMAN PLATELET, ALLOGENIC
     Route: 041
     Dates: start: 20160503, end: 20160503
  129. MAGNESIUM SULFATE. [Concomitant]
     Active Substance: MAGNESIUM SULFATE
     Route: 065
     Dates: start: 20160424, end: 20160424
  130. MAGNESIUM SULFATE. [Concomitant]
     Active Substance: MAGNESIUM SULFATE
     Route: 065
     Dates: start: 20160507, end: 20160507
  131. DOCUSATE-SENNA [Concomitant]
     Route: 065
     Dates: start: 20160501, end: 20160512
  132. LEVOFLOXACIN. [Concomitant]
     Active Substance: LEVOFLOXACIN
     Indication: INFECTION PROPHYLAXIS
     Route: 065
     Dates: start: 20160519
  133. OXYCODONE [Concomitant]
     Active Substance: OXYCODONE
     Route: 048
     Dates: start: 20160229, end: 20160419
  134. GRANISETRON [Concomitant]
     Active Substance: GRANISETRON
     Route: 048
     Dates: start: 20160419, end: 20160425
  135. ACYCLOVIR. [Concomitant]
     Active Substance: ACYCLOVIR
     Indication: ANTIVIRAL PROPHYLAXIS
     Route: 048
     Dates: start: 20151125, end: 20160419
  136. PROPOFOL. [Concomitant]
     Active Substance: PROPOFOL
     Indication: ANAESTHESIA
     Route: 041
     Dates: start: 20160316, end: 20160316
  137. MAGIC SWIZZLE [Concomitant]
     Indication: STOMATITIS
     Route: 048
     Dates: start: 20160321, end: 20160419
  138. DEXTROSE 5% IN 0.9% NORMAL SALINE [Concomitant]
     Indication: FLUID REPLACEMENT
     Dosage: 25 CC/HOUR
     Route: 041
     Dates: start: 20160407, end: 20160407
  139. VANCOMYCIN [Concomitant]
     Active Substance: VANCOMYCIN
     Route: 041
     Dates: start: 20160501, end: 20160511
  140. PLATELETS [Concomitant]
     Active Substance: HUMAN PLATELET, ALLOGENIC
     Route: 041
     Dates: start: 20160426, end: 20160426
  141. PLATELETS [Concomitant]
     Active Substance: HUMAN PLATELET, ALLOGENIC
     Route: 041
     Dates: start: 20160517, end: 20160517
  142. PLATELETS [Concomitant]
     Active Substance: HUMAN PLATELET, ALLOGENIC
     Route: 041
     Dates: start: 20160520, end: 20160520
  143. ISRADIPINE. [Concomitant]
     Active Substance: ISRADIPINE
     Route: 065
     Dates: start: 20160511, end: 20160511
  144. CALCIUM CHLORIDE. [Concomitant]
     Active Substance: CALCIUM CHLORIDE
     Indication: HYPOCALCAEMIA
     Route: 065
     Dates: start: 20160505, end: 20160505
  145. GRANISETRON [Concomitant]
     Active Substance: GRANISETRON
     Route: 048
     Dates: start: 20160517
  146. LACTATED RINGS [Concomitant]
     Indication: FLUID REPLACEMENT
     Route: 041
     Dates: start: 20160411, end: 20160411
  147. CEFUROXIME. [Concomitant]
     Active Substance: CEFUROXIME
     Indication: SINUSITIS
     Route: 048
     Dates: start: 20160406, end: 20160407
  148. ACETAMINOPHEN. [Concomitant]
     Active Substance: ACETAMINOPHEN
     Route: 065
     Dates: start: 20160517
  149. HYDROMORPHONE [Concomitant]
     Active Substance: HYDROMORPHONE
     Route: 041
     Dates: start: 20160501, end: 20160516
  150. VANCOMYCIN [Concomitant]
     Active Substance: VANCOMYCIN
     Route: 041
     Dates: start: 20160511, end: 20160512
  151. VANCOMYCIN [Concomitant]
     Active Substance: VANCOMYCIN
     Route: 065
     Dates: start: 20160512, end: 20160515
  152. ALBUMIN [Concomitant]
     Active Substance: ALBUMIN HUMAN
     Indication: HYPOTENSION
     Route: 041
     Dates: start: 20160420, end: 20160420
  153. PACKED RED BLOOD CELLS [Concomitant]
     Active Substance: HUMAN RED BLOOD CELL
     Dosage: 800 MILLIGRAM
     Route: 041
     Dates: start: 20160508, end: 20160508
  154. PLATELETS [Concomitant]
     Active Substance: HUMAN PLATELET, ALLOGENIC
     Dosage: 2.5 MICROGRAM
     Route: 041
     Dates: start: 20160423, end: 20160423
  155. PLATELETS [Concomitant]
     Active Substance: HUMAN PLATELET, ALLOGENIC
     Dosage: 2 UNITS
     Route: 041
     Dates: start: 20160502, end: 20160502
  156. PLATELETS [Concomitant]
     Active Substance: HUMAN PLATELET, ALLOGENIC
     Route: 041
     Dates: start: 20160519, end: 20160519
  157. DECITABINE. [Concomitant]
     Active Substance: DECITABINE
     Dosage: 60 MILLIGRAM
     Route: 065
     Dates: start: 20150127, end: 20150205
  158. DECITABINE. [Concomitant]
     Active Substance: DECITABINE
     Route: 065
     Dates: start: 20150330, end: 20150408
  159. PANTOPRAZOLE [Concomitant]
     Active Substance: PANTOPRAZOLE SODIUM
     Route: 065
     Dates: start: 20160501, end: 20160506
  160. PERAMIVIR [Concomitant]
     Active Substance: PERAMIVIR
     Indication: EVIDENCE BASED TREATMENT
     Route: 065
     Dates: start: 20160421, end: 20160421
  161. MAGNESIUM SULFATE. [Concomitant]
     Active Substance: MAGNESIUM SULFATE
     Route: 065
     Dates: start: 20160503, end: 20160503
  162. IVIG [Concomitant]
     Active Substance: HUMAN IMMUNOGLOBULIN G
     Indication: ANTIPLATELET THERAPY
     Route: 041
     Dates: start: 20160427, end: 20160427
  163. POTASSIUM CHLORIDE. [Concomitant]
     Active Substance: POTASSIUM CHLORIDE
     Route: 065
     Dates: start: 20160425, end: 20160501
  164. ALBUTEROL. [Concomitant]
     Active Substance: ALBUTEROL
     Indication: RESPIRATORY DISTRESS
     Dosage: 4 PUFFS
     Route: 065
     Dates: start: 20160501, end: 20160502
  165. ALBUTEROL. [Concomitant]
     Active Substance: ALBUTEROL
     Indication: SUPPORTIVE CARE
     Route: 065
     Dates: start: 20160502, end: 20160515
  166. ALBUTEROL. [Concomitant]
     Active Substance: ALBUTEROL
     Dosage: 4 PUFFS
     Route: 065
     Dates: start: 20160515
  167. DOCUSATE-SENNA [Concomitant]
     Indication: CONSTIPATION
     Route: 065
     Dates: start: 20160505
  168. CALCIUM GLUCONATE. [Concomitant]
     Active Substance: CALCIUM GLUCONATE
     Route: 065
     Dates: start: 20160509, end: 20160509
  169. BEN GAY [Concomitant]
     Indication: PAIN
     Dosage: AS NEEDED
     Route: 065
     Dates: start: 20160517
  170. ALTEPLASE [Concomitant]
     Active Substance: ALTEPLASE
     Indication: FIBRIN
     Route: 065
     Dates: start: 20160421, end: 20160423

REACTIONS (1)
  - Paraneoplastic syndrome [Not Recovered/Not Resolved]

NARRATIVE: CASE EVENT DATE: 20160421
